FAERS Safety Report 6816109-9 (Version None)
Quarter: 2010Q3

REPORT INFORMATION
  Report Type: 
  Country: None (occurrence: None)
  Receive Date: 20100702
  Receipt Date: 20100702
  Transmission Date: 20110219
  Serious: Yes (Hospitalization)
  Sender: FDA-Public Use
  Company Number: None

PATIENT
  Sex: Male
  Weight: 48 kg

DRUGS (8)
  1. CYCLOPHOSPHAMIDE [Suspect]
     Dosage: 1500 MG
     Dates: end: 20100202
  2. CYTARABINE [Suspect]
     Dosage: 880 MG
     Dates: end: 20100212
  3. DEXAMETHASONE [Suspect]
     Dosage: 210 MG
     Dates: end: 20100118
  4. DOXORUBICIN HYDROCHLORIDE [Suspect]
     Dosage: 114 MG
     Dates: end: 20100112
  5. METHOTREXATE [Suspect]
     Dosage: 45 MG
     Dates: end: 20100209
  6. PEG-L ASPARAGINASE (PEGASPARGASE, ONCOSPAR) [Suspect]
     Dosage: 7425 MG
     Dates: end: 20100216
  7. THIOGUANINE [Suspect]
     Dosage: 1200 MG
     Dates: end: 20100215
  8. VINCRISTINE SULFATE [Suspect]
     Dosage: 10 MG
     Dates: end: 20100216

REACTIONS (5)
  - ANAEMIA [None]
  - CATHETER SITE HAEMORRHAGE [None]
  - COAGULATION FACTOR VII LEVEL DECREASED [None]
  - PLATELET COUNT DECREASED [None]
  - THROMBOCYTOPENIA [None]
